FAERS Safety Report 10075208 (Version 1)
Quarter: 2014Q2

REPORT INFORMATION
  Report Type: Spontaneous
  Country: US (occurrence: US)
  Receive Date: 20140414
  Receipt Date: 20140414
  Transmission Date: 20141212
  Serious: No
  Sender: FDA-Public Use
  Company Number: US-009507513-1404USA004459

PATIENT
  Age: 57 Year
  Sex: Female

DRUGS (1)
  1. ASMANEX TWISTHALER [Suspect]
     Indication: ASTHMA
     Dosage: 220 MCG; 1 INHALATION DAILY
     Route: 055
     Dates: start: 201303

REACTIONS (2)
  - Asthma [Recovered/Resolved]
  - Product container issue [Unknown]
